FAERS Safety Report 12369021 (Version 1)
Quarter: 2016Q2

REPORT INFORMATION
  Report Type: Report from Study
  Country: US (occurrence: US)
  Receive Date: 20160513
  Receipt Date: 20160513
  Transmission Date: 20160815
  Serious: Yes (Death)
  Sender: FDA-Public Use
  Company Number: US-ASTRAZENECA-2016SE50355

PATIENT
  Age: 33143 Day
  Sex: Female
  Weight: 56.7 kg

DRUGS (1)
  1. ARIMIDEX [Suspect]
     Active Substance: ANASTROZOLE
     Indication: BREAST CANCER
     Route: 048
     Dates: start: 201104

REACTIONS (1)
  - Death [Fatal]

NARRATIVE: CASE EVENT DATE: 20160504
